FAERS Safety Report 18513594 (Version 1)
Quarter: 2020Q4

REPORT INFORMATION
  Report Type: Spontaneous
  Country: US (occurrence: US)
  Receive Date: 20201117
  Receipt Date: 20201117
  Transmission Date: 20210114
  Serious: No
  Sender: FDA-Public Use
  Company Number: US-ANIPHARMA-2020-US-020024

PATIENT
  Sex: Female

DRUGS (12)
  1. TURMERIC [Concomitant]
     Active Substance: HERBALS\TURMERIC
  2. ESZOPICLONE. [Concomitant]
     Active Substance: ESZOPICLONE
  3. IBRANCE [Concomitant]
     Active Substance: PALBOCICLIB
  4. BUPROPRION HCL [Concomitant]
     Active Substance: BUPROPION HYDROCHLORIDE
  5. OMEGA 3 + D [Concomitant]
  6. PENICILLAMINE (NON-SPECIFIC) [Suspect]
     Active Substance: PENICILLAMINE
     Indication: PRODUCT USED FOR UNKNOWN INDICATION
  7. GARLIC. [Concomitant]
     Active Substance: GARLIC
  8. MULTIVITAMIN [Concomitant]
     Active Substance: VITAMINS
  9. ESCITALOPRAM OXALATE. [Concomitant]
     Active Substance: ESCITALOPRAM OXALATE
  10. OMEPRAZOLE. [Concomitant]
     Active Substance: OMEPRAZOLE
  11. LETROZOLE. [Concomitant]
     Active Substance: LETROZOLE
  12. ROSUVASTATIN CALCIUM. [Concomitant]
     Active Substance: ROSUVASTATIN CALCIUM

REACTIONS (1)
  - Drug hypersensitivity [Unknown]
